FAERS Safety Report 6810836-5 (Version None)
Quarter: 2010Q2

REPORT INFORMATION
  Report Type: 
  Country: None (occurrence: None)
  Receive Date: 20100630
  Receipt Date: 20080625
  Transmission Date: 20101027
  Serious: No
  Sender: FDA-Public Use
  Company Number: US-PFIZER INC-2008029005

PATIENT
  Age: 43 Year
  Sex: Female
  Weight: 64.41 kg

DRUGS (1)
  1. ESTRING [Suspect]
     Dates: start: 20080101

REACTIONS (1)
  - PELVIC PAIN [None]
